FAERS Safety Report 13068118 (Version 1)
Quarter: 2016Q4

REPORT INFORMATION
  Report Type: Spontaneous
  Country: JP (occurrence: JP)
  Receive Date: 20161228
  Receipt Date: 20161228
  Transmission Date: 20170207
  Serious: Yes (Hospitalization)
  Sender: FDA-Public Use
  Company Number: PHJP2016JP035962

PATIENT
  Age: 2 Year
  Sex: Male

DRUGS (2)
  1. NEORAL [Suspect]
     Active Substance: CYCLOSPORINE
     Indication: NEPHROTIC SYNDROME
     Dosage: 70 MG, UNK
     Route: 048
  2. NEORAL [Suspect]
     Active Substance: CYCLOSPORINE
     Dosage: 40 MG, UNK
     Route: 048

REACTIONS (4)
  - Immunosuppressant drug level increased [Recovered/Resolved]
  - Nausea [Recovered/Resolved]
  - Hepatic function abnormal [Unknown]
  - Gastroenteritis [Recovered/Resolved]
